FAERS Safety Report 10156566 (Version 4)
Quarter: 2019Q3

REPORT INFORMATION
  Report Type: Report from Study
  Country: US (occurrence: US)
  Receive Date: 20140507
  Receipt Date: 20190812
  Transmission Date: 20191004
  Serious: Yes (Death, Life-Threatening, Hospitalization)
  Sender: FDA-Public Use
  Company Number: US-ROCHE-1392497

PATIENT
  Age: 64 Year
  Sex: Male
  Weight: 99.2 kg

DRUGS (11)
  1. OXALIPLATIN. [Suspect]
     Active Substance: OXALIPLATIN
     Indication: OESOPHAGEAL CANCER METASTATIC
     Route: 065
     Dates: start: 20110426, end: 20120124
  2. LOMOTIL [Concomitant]
     Active Substance: ATROPINE SULFATE\DIPHENOXYLATE HYDROCHLORIDE
  3. BEVACIZUMAB. [Suspect]
     Active Substance: BEVACIZUMAB
     Indication: OESOPHAGEAL CANCER METASTATIC
     Route: 042
     Dates: start: 20110426, end: 20130521
  4. OMEPRAZOLE. [Concomitant]
     Active Substance: OMEPRAZOLE
  5. CAPECITABINE. [Suspect]
     Active Substance: CAPECITABINE
     Route: 048
     Dates: start: 20110503
  6. TRASTUZUMAB. [Suspect]
     Active Substance: TRASTUZUMAB
     Indication: OESOPHAGEAL CANCER METASTATIC
     Dosage: LAST DOSE PRIOR TO SAE: 08/APR/2014.
     Route: 065
     Dates: start: 20110426
  7. ASPIRIN [ACETYLSALICYLIC ACID] [Concomitant]
     Active Substance: ASPIRIN
  8. CAPECITABINE. [Suspect]
     Active Substance: CAPECITABINE
     Indication: OESOPHAGEAL CANCER METASTATIC
     Dosage: LAST DOSE PRIOR TO SAE: 22/APR/2014.
     Route: 042
     Dates: start: 20110426
  9. ZOFRAN [Concomitant]
     Active Substance: ONDANSETRON HYDROCHLORIDE
  10. LOVASTATIN. [Concomitant]
     Active Substance: LOVASTATIN
  11. CIALIS [Concomitant]
     Active Substance: TADALAFIL

REACTIONS (4)
  - Myocardial infarction [Unknown]
  - Atrial fibrillation [Unknown]
  - Death [Fatal]
  - Cerebrovascular accident [Unknown]

NARRATIVE: CASE EVENT DATE: 20140501
